FAERS Safety Report 10268443 (Version 1)
Quarter: 2014Q2

REPORT INFORMATION
  Report Type: Spontaneous
  Country: US (occurrence: US)
  Receive Date: 20140630
  Receipt Date: 20140630
  Transmission Date: 20141212
  Serious: No
  Sender: FDA-Public Use
  Company Number: US-009507513-1406USA012007

PATIENT
  Sex: Male

DRUGS (3)
  1. JANUVIA [Suspect]
     Route: 048
  2. JANUVIA [Suspect]
     Route: 048
  3. JANUVIA [Suspect]
     Route: 048

REACTIONS (2)
  - Nausea [Recovered/Resolved]
  - Incorrect dose administered [Unknown]
